FAERS Safety Report 9123810 (Version 1)
Quarter: 2013Q1

REPORT INFORMATION
  Report Type: Spontaneous
  Country: GB (occurrence: GB)
  Receive Date: 20130115
  Receipt Date: 20130115
  Transmission Date: 20140127
  Serious: Yes (Hospitalization)
  Sender: FDA-Public Use
  Company Number: GB-PFIZER INC-2013010600

PATIENT
  Age: 54 Year
  Sex: Female

DRUGS (17)
  1. LANSOPRAZOLE [Suspect]
     Dosage: 30 MG, 1X/DAY
  2. PIPERACILLIN/TAZOBACTAM [Suspect]
     Indication: SEPSIS
     Dosage: PIPERACILLIN 4G / TAZOBACTAM 500MG POWDER FOR SOLUTION FOR INJECTION.
     Route: 042
     Dates: start: 20110104, end: 20110112
  3. FLUCLOXACILLIN [Suspect]
     Dosage: 500 MG, 4X/DAY
     Route: 048
     Dates: start: 20100122, end: 20100128
  4. FOLIC ACID [Concomitant]
     Dosage: 50 MG, 1X/DAY
     Route: 048
  5. VITAMIN B COMPLEX [Concomitant]
     Dosage: 2 DF, 1X/DAY
     Route: 048
  6. CELLCEPT [Concomitant]
     Dosage: 1 G, 2X/DAY
     Route: 048
  7. FLUOXETINE [Concomitant]
     Dosage: 40 MG, 1X/DAY
     Route: 048
  8. ASCORBIC ACID [Concomitant]
     Dosage: 100 MG, 3X/DAY
     Route: 048
  9. FERROUS SULPHATE [Concomitant]
     Dosage: 200 MG, 3X/DAY
     Route: 048
  10. PRAVASTATIN [Concomitant]
     Dosage: 40 MG, 1X/DAY
     Route: 048
  11. THIAMINE [Concomitant]
     Dosage: 100 MG, 3X/DAY
     Route: 048
  12. AMITRIPTYLINE [Concomitant]
     Dosage: 10 MG, 1X/DAY
     Route: 048
  13. PROPRANOLOL [Concomitant]
     Dosage: 40 MG, 2X/DAY
     Route: 048
  14. MULTIVITAMINS [Concomitant]
     Dosage: 1 DF, UNK
     Route: 048
  15. PREDNISOLONE [Concomitant]
     Dosage: 5 MG, 2X/DAY
     Route: 048
  16. NOVOMIX [Concomitant]
     Dosage: 100UNITS/ML SUSPENSION FOR INJECTION 3ML PRE-FILLE
     Route: 058
  17. PERINDOPRIL [Concomitant]
     Dosage: 40 MG, 1X/DAY
     Route: 048

REACTIONS (2)
  - Clostridium difficile infection [Recovered/Resolved]
  - Diarrhoea [Unknown]
